FAERS Safety Report 8380455-0 (Version None)
Quarter: 2012Q2

REPORT INFORMATION
  Report Type: 
  Country: None (occurrence: None)
  Receive Date: 20120523
  Receipt Date: 20120521
  Transmission Date: 20120825
  Serious: Yes (Hospitalization)
  Sender: FDA-Public Use
  Company Number: US-GLAXOSMITHKLINE-A0978417A

PATIENT
  Age: 50 Year
  Sex: Male

DRUGS (7)
  1. OXYCODONE HCL [Concomitant]
  2. CLONAZEPAM [Concomitant]
  3. CYCLOBENAZPRINE [Concomitant]
  4. ADVAIR DISKUS 100/50 [Suspect]
     Indication: CHRONIC OBSTRUCTIVE PULMONARY DISEASE
     Dosage: 1PUFF TWICE PER DAY
     Route: 055
  5. LEXAPRO [Concomitant]
  6. LOSARTAN POTASSIUM [Concomitant]
  7. METHADONE HCL [Concomitant]

REACTIONS (8)
  - POST PROCEDURAL HAEMORRHAGE [None]
  - POST PROCEDURAL PNEUMONIA [None]
  - HEPATIC FAILURE [None]
  - PYREXIA [None]
  - RENAL FAILURE ACUTE [None]
  - PANCREATITIS [None]
  - GALLBLADDER DISORDER [None]
  - PRODUCT QUALITY ISSUE [None]
